FAERS Safety Report 13334771 (Version 1)
Quarter: 2017Q1

REPORT INFORMATION
  Report Type: Spontaneous
  Country: US (occurrence: US)
  Receive Date: 20170314
  Receipt Date: 20170314
  Transmission Date: 20170428
  Serious: Yes (Other)
  Sender: FDA-Public Use
  Company Number: US-BAYER-2017-042351

PATIENT
  Age: 63 Year
  Sex: Female
  Weight: 70.31 kg

DRUGS (2)
  1. ALKA-SELTZER PLUS NOS [Suspect]
     Active Substance: ACETAMINOPHEN\ASPIRIN\CHLORPHENIRAMINE MALEATE\DEXTROMETHORPHAN HYDROBROMIDE\DIPHENHYDRAMINE HYDROCHLORIDE\DOXYLAMINE SUCCINATE\PHENYLEPHRINE BITARTRATE\PHENYLEPHRINE HYDROCHLORIDE
     Indication: SINUS CONGESTION
     Dosage: 2 DF, UNK
     Dates: start: 20170226, end: 20170226
  2. ALKA-SELTZER PLUS SEVERE SINUS COLD AND COUGH LIQUID GELS [Suspect]
     Active Substance: ACETAMINOPHEN\DEXTROMETHORPHAN HYDROBROMIDE\GUAIFENESIN\PHENYLEPHRINE HYDROCHLORIDE
     Indication: SINUS CONGESTION
     Dosage: 2 DF, UNK
     Dates: start: 20170226, end: 20170226

REACTIONS (4)
  - Chest pain [Recovered/Resolved]
  - Patient dissatisfaction with treatment [None]
  - Choking [Recovered/Resolved]
  - Chest discomfort [Recovered/Resolved]
